FAERS Safety Report 12586268 (Version 1)
Quarter: 2016Q3

REPORT INFORMATION
  Report Type: Spontaneous
  Country: US (occurrence: None)
  Receive Date: 20160722
  Receipt Date: 20160722
  Transmission Date: 20161109
  Serious: Yes (Disabling)
  Sender: FDA-Public Use
  Company Number: None

PATIENT
  Age: 53 Year
  Sex: Female
  Weight: 70.76 kg

DRUGS (10)
  1. MULTI VITAMIN [Concomitant]
     Active Substance: VITAMINS
  2. TAMOXIFEN [Concomitant]
     Active Substance: TAMOXIFEN
  3. METHYLPHENIDATE. [Concomitant]
     Active Substance: METHYLPHENIDATE
  4. VISTARIL [Concomitant]
     Active Substance: HYDROXYZINE PAMOATE
  5. ZINC/COPPER [Concomitant]
  6. ACYCLOVIR. [Concomitant]
     Active Substance: ACYCLOVIR
  7. COMPLETE B COMPLEX [Concomitant]
  8. VITAMIN E [Concomitant]
     Active Substance: .ALPHA.-TOCOPHEROL
  9. OCTACOSANOL [Concomitant]
  10. AMANTADINE HCL [Suspect]
     Active Substance: AMANTADINE HYDROCHLORIDE
     Indication: PARKINSONISM
     Route: 048
     Dates: start: 20160711, end: 20160721

REACTIONS (8)
  - Sensory disturbance [None]
  - Product substitution issue [None]
  - Product formulation issue [None]
  - Dyspnoea [None]
  - Muscle contractions involuntary [None]
  - Gait disturbance [None]
  - Drug ineffective [None]
  - Dysphagia [None]

NARRATIVE: CASE EVENT DATE: 20160720
